FAERS Safety Report 6123497-8 (Version None)
Quarter: 2009Q1

REPORT INFORMATION
  Report Type: 
  Country: None (occurrence: None)
  Receive Date: 20090318
  Receipt Date: 20090311
  Transmission Date: 20090719
  Serious: Yes (Other)
  Sender: FDA-Public Use
  Company Number: CA-JNJCH-2009003733

PATIENT
  Sex: Female
  Weight: 79.4 kg

DRUGS (8)
  1. REACTINE [Suspect]
     Indication: RHINITIS
     Dosage: TEXT:10MG UNSPECIFIED
     Route: 048
     Dates: start: 20080401
  2. MICARDIS [Concomitant]
     Indication: HYPERTENSION
     Dosage: TEXT:80MG DAILY
     Route: 065
  3. HYDROCHLOROTHIAZIDE [Concomitant]
     Indication: HYPERTENSION
     Dosage: TEXT:25MG DAILY
     Route: 065
  4. VITAMIN D [Concomitant]
     Indication: DRUG USE FOR UNKNOWN INDICATION
     Dosage: FREQ:1X / WEEK
     Route: 065
  5. DIDRONEL [Concomitant]
     Indication: BONE DISORDER
     Dosage: TEXT:ONCE DAILY
     Route: 065
  6. ENTROPHEN [Concomitant]
     Dosage: TEXT:325MG DAILY
     Route: 065
  7. LIPITOR [Concomitant]
     Indication: HYPERCHOLESTEROLAEMIA
     Dosage: TEXT:25MG DAILY
     Route: 065
  8. ZOPICLONE [Concomitant]
     Dosage: TEXT:7.5MG EVERY NIGHT
     Route: 065

REACTIONS (1)
  - HYPOAESTHESIA FACIAL [None]
